FAERS Safety Report 11897470 (Version 1)
Quarter: 2016Q1

REPORT INFORMATION
  Report Type: Spontaneous
  Country: US (occurrence: US)
  Receive Date: 20160108
  Receipt Date: 20160108
  Transmission Date: 20160526
  Serious: No
  Sender: FDA-Public Use
  Company Number: US-VIFOR (INTERNATIONAL) INC.-VIT-2015-03551

PATIENT
  Age: 73 Year
  Sex: Female
  Weight: 83.2 kg

DRUGS (3)
  1. EPOGEN [Concomitant]
     Active Substance: ERYTHROPOIETIN
     Dates: start: 2015
  2. HEPARIN [Concomitant]
     Active Substance: HEPARIN SODIUM
  3. MIRCERA [Suspect]
     Active Substance: METHOXY POLYETHYLENE GLYCOL-EPOETIN BETA
     Indication: PRODUCT USED FOR UNKNOWN INDICATION

REACTIONS (1)
  - Pruritus [Unknown]

NARRATIVE: CASE EVENT DATE: 20150724
